FAERS Safety Report 8075392-5 (Version None)
Quarter: 2012Q1

REPORT INFORMATION
  Report Type: 
  Country: None (occurrence: None)
  Receive Date: 20120127
  Receipt Date: 20120119
  Transmission Date: 20120608
  Serious: Yes (Life-Threatening, Hospitalization)
  Sender: FDA-Public Use
  Company Number: US-BAYER-2011-034342

PATIENT
  Age: 19 Year
  Sex: Female
  Weight: 52.154 kg

DRUGS (10)
  1. ADVAIR DISKUS 100/50 [Concomitant]
  2. COMBIVENT [Concomitant]
     Indication: DYSPNOEA
  3. YASMIN [Suspect]
     Indication: OVARIAN CYST
     Dosage: UNK
     Route: 048
     Dates: start: 20031201, end: 20040301
  4. IBUPROFEN [Concomitant]
     Dosage: UNK
     Dates: start: 19960101
  5. EXCEDRIN [Concomitant]
     Indication: HEADACHE
     Dosage: UNK UNK, OW
     Dates: start: 19920101, end: 20090101
  6. PAXIL [Concomitant]
  7. VICODIN [Concomitant]
  8. IMITREX [Concomitant]
     Dosage: UNK
     Dates: start: 20000101, end: 20040101
  9. NEXIUM [Concomitant]
  10. ATIVAN [Concomitant]
     Indication: ANXIETY

REACTIONS (7)
  - GENERAL PHYSICAL HEALTH DETERIORATION [None]
  - ANXIETY [None]
  - CHEST PAIN [None]
  - EMOTIONAL DISTRESS [None]
  - PULMONARY EMBOLISM [None]
  - PAIN [None]
  - PULMONARY FIBROSIS [None]
